FAERS Safety Report 22624745 (Version 1)
Quarter: 2023Q2

REPORT INFORMATION
  Report Type: Spontaneous
  Country: CN (occurrence: CN)
  Receive Date: 20230621
  Receipt Date: 20230621
  Transmission Date: 20230722
  Serious: Yes (Hospitalization)
  Sender: FDA-Public Use
  Company Number: CN-009507513-2306CHN009829

PATIENT
  Age: 70 Year
  Sex: Female
  Weight: 60 kg

DRUGS (7)
  1. KEYTRUDA [Suspect]
     Active Substance: PEMBROLIZUMAB
     Indication: Endometrial cancer
     Dosage: 200 MG, DAY1, IVGTT
     Route: 041
     Dates: start: 20230203
  2. KEYTRUDA [Suspect]
     Active Substance: PEMBROLIZUMAB
     Dosage: 200 MG, ONCE
     Route: 041
     Dates: start: 20230302, end: 20230302
  3. LENVATINIB MESYLATE [Suspect]
     Active Substance: LENVATINIB MESYLATE
     Dosage: 8 MG, QD
     Route: 048
     Dates: start: 20230203
  4. MECAPEGFILGRASTIM [Suspect]
     Active Substance: MECAPEGFILGRASTIM
     Indication: Endometrial cancer
     Dosage: 6 MG, ONCE
     Route: 058
     Dates: start: 20230304, end: 20230304
  5. PACLITAXEL [Suspect]
     Active Substance: PACLITAXEL
     Indication: Endometrial cancer
     Dosage: 0.3 GRAM, DAY1
     Route: 041
     Dates: start: 20230203
  6. PACLITAXEL [Suspect]
     Active Substance: PACLITAXEL
     Dosage: 0.3 GRAM, ONCE
     Route: 041
     Dates: start: 20230302, end: 20230302
  7. CATEQUENTINIB DIHYDROCHLORIDE [Suspect]
     Active Substance: CATEQUENTINIB DIHYDROCHLORIDE
     Indication: Endometrial cancer
     Dosage: 12 MG, QD
     Route: 048
     Dates: start: 20230302, end: 20230311

REACTIONS (7)
  - Drug eruption [Recovering/Resolving]
  - Pain in extremity [Recovering/Resolving]
  - Rash macular [Recovering/Resolving]
  - Rash pruritic [Recovering/Resolving]
  - Back pain [Recovering/Resolving]
  - Product use in unapproved indication [Unknown]
  - Inappropriate schedule of product administration [Unknown]

NARRATIVE: CASE EVENT DATE: 20230203
